FAERS Safety Report 9743282 (Version 1)
Quarter: 2013Q4

REPORT INFORMATION
  Report Type: Spontaneous
  Country: US (occurrence: US)
  Receive Date: 20131210
  Receipt Date: 20131210
  Transmission Date: 20140711
  Serious: No
  Sender: FDA-Public Use
  Company Number: US-GILEAD-2009-0025560

PATIENT
  Age: 64 Year
  Sex: Female

DRUGS (16)
  1. LETAIRIS [Suspect]
     Indication: PULMONARY ARTERIAL HYPERTENSION
     Route: 048
     Dates: start: 20091109, end: 20091110
  2. OXYCODONE [Concomitant]
  3. PAXIL [Concomitant]
  4. CELLCEPT [Concomitant]
  5. XOPENEX [Concomitant]
  6. SPIRIVA [Concomitant]
  7. RISPERDAL [Concomitant]
  8. PANTOPRAZOLE [Concomitant]
  9. TOPROL [Concomitant]
  10. FOLIC ACID [Concomitant]
  11. PLAVIX [Concomitant]
  12. ZETIA [Concomitant]
  13. FLONASE [Concomitant]
  14. EFFEXOR [Concomitant]
  15. CADUET [Concomitant]
  16. LOVAZA [Concomitant]

REACTIONS (5)
  - Pruritus [Recovered/Resolved]
  - Blood pressure increased [Recovered/Resolved]
  - Swelling face [Recovered/Resolved]
  - Headache [Recovered/Resolved]
  - Flushing [Not Recovered/Not Resolved]
